FAERS Safety Report 5007277-2 (Version None)
Quarter: 2006Q2

REPORT INFORMATION
  Report Type: 
  Country: None (occurrence: None)
  Receive Date: 20060518
  Receipt Date: 20060518
  Transmission Date: 20061013
  Serious: Yes (Hospitalization)
  Sender: FDA-Public Use
  Company Number: None

PATIENT
  Sex: Male

DRUGS (16)
  1. CLOPIDOGREL [Suspect]
     Indication: STENT PLACEMENT
     Dosage: 75 MG DAILY  PO
     Route: 048
     Dates: start: 20060317, end: 20060420
  2. EPTIFIBATIDE  75 MG IN 100 ML [Suspect]
     Indication: CATHETERISATION CARDIAC
     Dosage: 2 MCG/KG/MIN FOR 18 IV
     Route: 042
     Dates: start: 20060317, end: 20060317
  3. APAP TAB [Concomitant]
  4. ASPIRIN [Concomitant]
  5. ALBUTEROL SULFATE AUTOHALER [Concomitant]
  6. ATENOLOL [Concomitant]
  7. CITALOPRAM HYDROBROMIDE [Concomitant]
  8. DILTIAZEM [Concomitant]
  9. GABAPENTIN [Concomitant]
  10. GLYBURIDE [Concomitant]
  11. LOVASTATIN [Concomitant]
  12. OMEPRAZOLE [Concomitant]
  13. OXYBUTYNIN [Concomitant]
  14. PRAZOSIN HCL [Concomitant]
  15. RANITIDINE [Concomitant]
  16. VALSARTAN [Concomitant]

REACTIONS (2)
  - POST PROCEDURAL COMPLICATION [None]
  - RECTAL HAEMORRHAGE [None]
